FAERS Safety Report 5937127-9 (Version None)
Quarter: 2008Q4

REPORT INFORMATION
  Report Type: 
  Country: None (occurrence: None)
  Receive Date: 20081031
  Receipt Date: 20081027
  Transmission Date: 20090506
  Serious: Yes (Death)
  Sender: FDA-Public Use
  Company Number: PHHY2008ES26095

PATIENT
  Sex: Male

DRUGS (2)
  1. VOLTAREN [Suspect]
     Indication: ANALGESIA
     Dosage: 50 MG
     Route: 030
  2. CLEXANE [Concomitant]

REACTIONS (1)
  - PERITONEAL HAEMORRHAGE [None]
